FAERS Safety Report 6313160-2 (Version None)
Quarter: 2009Q3

REPORT INFORMATION
  Report Type: 
  Country: None (occurrence: None)
  Receive Date: 20090814
  Receipt Date: 20090806
  Transmission Date: 20100115
  Serious: Yes (Other)
  Sender: FDA-Public Use
  Company Number: CHPA2009US16525

PATIENT
  Sex: Male

DRUGS (1)
  1. TRANSDERM SCOP          (HYOSCINE HYDROBROMIDE) [Suspect]
     Dosage: TRANSDERMAL
     Route: 062

REACTIONS (5)
  - ABASIA [None]
  - CONFUSIONAL STATE [None]
  - DYSARTHRIA [None]
  - FALL [None]
  - HYPOKINESIA [None]
